FAERS Safety Report 9090445 (Version 1)
Quarter: 2013Q1

REPORT INFORMATION
  Report Type: Spontaneous
  Country: DE (occurrence: DE)
  Receive Date: 20130219
  Receipt Date: 20130219
  Transmission Date: 20140127
  Serious: Yes (Other)
  Sender: FDA-Public Use
  Company Number: DE-AMGEN-DEUSP2013010233

PATIENT
  Age: 71 Year
  Sex: Female

DRUGS (6)
  1. ENBREL [Suspect]
     Indication: RHEUMATOID ARTHRITIS
     Dosage: 50 MG, WEEKLY
     Dates: start: 20100804
  2. ENBREL [Suspect]
     Dosage: UNK
  3. MTX                                /00113802/ [Concomitant]
     Dosage: 20 MG
  4. FOLIC ACID [Concomitant]
     Dosage: UNK
  5. ATACAND [Concomitant]
     Dosage: UNK
  6. IDEOS [Concomitant]
     Dosage: UNK

REACTIONS (5)
  - Bone fissure [Not Recovered/Not Resolved]
  - Upper limb fracture [Not Recovered/Not Resolved]
  - Fall [Unknown]
  - Mobility decreased [Unknown]
  - Oedema peripheral [Recovering/Resolving]
